FAERS Safety Report 23883692 (Version 1)
Quarter: 2024Q2

REPORT INFORMATION
  Report Type: Report from Study
  Country: JP (occurrence: JP)
  Receive Date: 20240522
  Receipt Date: 20240522
  Transmission Date: 20240716
  Serious: Yes (Other)
  Sender: FDA-Public Use
  Company Number: JP-JNJFOC-20240549401

PATIENT

DRUGS (2)
  1. ITRACONAZOLE [Suspect]
     Active Substance: ITRACONAZOLE
     Indication: Product used for unknown indication
     Dosage: DOSE UNKNOWN
     Route: 048
  2. TRASTUZUMAB DERUXTECAN [Suspect]
     Active Substance: TRASTUZUMAB DERUXTECAN
     Indication: HER2 positive salivary gland cancer
     Dosage: DOSE UNKNOWN
     Route: 065

REACTIONS (17)
  - Interstitial lung disease [Unknown]
  - Decreased appetite [Unknown]
  - Nausea [Unknown]
  - Neutrophil count decreased [Unknown]
  - White blood cell count decreased [Unknown]
  - Constipation [Unknown]
  - Aspartate aminotransferase increased [Unknown]
  - Alanine aminotransferase increased [Unknown]
  - Platelet count decreased [Unknown]
  - Diarrhoea [Unknown]
  - Fatigue [Unknown]
  - Malaise [Unknown]
  - Alopecia [Unknown]
  - Cough [Unknown]
  - Anaemia [Unknown]
  - Vomiting [Unknown]
  - Stomatitis [Unknown]
